FAERS Safety Report 8386498-5 (Version None)
Quarter: 2012Q2

REPORT INFORMATION
  Report Type: 
  Country: None (occurrence: None)
  Receive Date: 20120525
  Receipt Date: 20120518
  Transmission Date: 20120825
  Serious: Yes (Hospitalization)
  Sender: FDA-Public Use
  Company Number: IT-SANOFI-AVENTIS-2012SA035423

PATIENT
  Age: 82 Year
  Sex: Male

DRUGS (5)
  1. ANAFRANIL [Concomitant]
     Route: 048
     Dates: start: 20050224, end: 20120117
  2. ASPIRIN [Concomitant]
     Route: 048
     Dates: start: 20100301, end: 20120117
  3. LASIX [Suspect]
     Route: 048
     Dates: start: 20120114, end: 20120117
  4. DILTIAZEM [Concomitant]
     Route: 048
     Dates: start: 20060922, end: 20120117
  5. RAMIPRIL HCT-ZENTIVA [Concomitant]
     Route: 048
     Dates: start: 20050119, end: 20120117

REACTIONS (5)
  - BLOOD CREATININE INCREASED [None]
  - DYSPNOEA [None]
  - URINARY INCONTINENCE [None]
  - ABDOMINAL PAIN UPPER [None]
  - PRESYNCOPE [None]
